FAERS Safety Report 18718326 (Version 1)
Quarter: 2021Q1

REPORT INFORMATION
  Report Type: Spontaneous
  Country: IL (occurrence: IL)
  Receive Date: 20210108
  Receipt Date: 20210108
  Transmission Date: 20210419
  Serious: No
  Sender: FDA-Public Use
  Company Number: IL-LUPIN PHARMACEUTICALS INC.-2020-11742

PATIENT
  Age: 35 Year
  Sex: Female

DRUGS (3)
  1. METHYLBENZETHONIUM CHLORIDE;PAROMOMYCIN [Suspect]
     Active Substance: METHYLBENZETHONIUM CHLORIDE\PAROMOMYCIN
     Indication: CUTANEOUS LEISHMANIASIS
     Dosage: UNK UNK, QD
     Route: 061
  2. CEPHALEXIN. [Suspect]
     Active Substance: CEPHALEXIN
     Indication: CUTANEOUS LEISHMANIASIS
     Dosage: UNK
     Route: 048
  3. CEFAZOLIN [Suspect]
     Active Substance: CEFAZOLIN
     Indication: CUTANEOUS LEISHMANIASIS
     Dosage: UNK
     Route: 042

REACTIONS (1)
  - Maternal exposure during pregnancy [Unknown]
